FAERS Safety Report 8852814 (Version 3)
Quarter: 2012Q4

REPORT INFORMATION
  Report Type: Report from Study
  Country: US (occurrence: US)
  Receive Date: 20121022
  Receipt Date: 20121102
  Transmission Date: 20130627
  Serious: Yes (Hospitalization)
  Sender: FDA-Public Use
  Company Number: US-JNJFOC-20121009450

PATIENT
  Age: 14 Year
  Sex: Female
  Weight: 33.13 kg

DRUGS (7)
  1. REMICADE [Suspect]
     Indication: CROHN^S DISEASE
     Route: 042
     Dates: start: 20091030, end: 20100527
  2. 6-MP [Concomitant]
  3. PENTASA [Concomitant]
  4. 5-ASA [Concomitant]
     Route: 048
  5. METHOTREXATE [Concomitant]
  6. PREDNISONE [Concomitant]
  7. VANCOMYCIN [Concomitant]

REACTIONS (1)
  - Crohn^s disease [Recovered/Resolved]
